FAERS Safety Report 6413220-1 (Version None)
Quarter: 2009Q4

REPORT INFORMATION
  Report Type: 
  Country: None (occurrence: None)
  Receive Date: 20091026
  Receipt Date: 20091020
  Transmission Date: 20100525
  Serious: Yes (Death)
  Sender: FDA-Public Use
  Company Number: PHEH2009US11701

PATIENT
  Sex: Female
  Weight: 45.351 kg

DRUGS (4)
  1. EXJADE [Suspect]
     Indication: MYELOPROLIFERATIVE DISORDER
     Dosage: 1000 MG, QD
     Route: 048
     Dates: start: 20081006, end: 20090819
  2. EXJADE [Suspect]
     Indication: SERUM FERRITIN INCREASED
  3. MEGACE [Concomitant]
     Dosage: 625 MG DAILY
     Route: 048
  4. ANAGRELIDE HCL [Concomitant]
     Dosage: 0.5 MG 2 CAPS AM + PM
     Route: 048

REACTIONS (1)
  - DEATH [None]
